FAERS Safety Report 17543621 (Version 1)
Quarter: 2020Q1

REPORT INFORMATION
  Report Type: Spontaneous
  Country: ES (occurrence: ES)
  Receive Date: 20200316
  Receipt Date: 20200316
  Transmission Date: 20200409
  Serious: Yes (Hospitalization)
  Sender: FDA-Public Use
  Company Number: ES-TEVA-2020-ES-1201056

PATIENT
  Age: 95 Year
  Sex: Female

DRUGS (1)
  1. CARVEDILOL(2431A) [Suspect]
     Active Substance: CARVEDILOL
     Dates: start: 20120620

REACTIONS (1)
  - Presyncope [Recovered/Resolved]

NARRATIVE: CASE EVENT DATE: 20191030
